FAERS Safety Report 6317153-0 (Version None)
Quarter: 2009Q3

REPORT INFORMATION
  Report Type: 
  Country: None (occurrence: None)
  Receive Date: 20090819
  Receipt Date: 20090807
  Transmission Date: 20100115
  Serious: Yes (Hospitalization)
  Sender: FDA-Public Use
  Company Number: 2009-02794

PATIENT
  Age: 59 Year
  Sex: Female
  Weight: 56.7 kg

DRUGS (12)
  1. VELCADE [Suspect]
     Indication: MANTLE CELL LYMPHOMA
     Dosage: 1.3 MG/M2,
     Dates: start: 20090601, end: 20090702
  2. RITUXIMAB(RITUXIMAB) INJECTION, 375MG/M2 [Suspect]
     Indication: MANTLE CELL LYMPHOMA
     Dosage: 375 MG/M2,
     Dates: start: 20090601, end: 20090622
  3. LENALIDOMIDE(LENALIDOMIDE) CAPSULE [Suspect]
     Indication: MANTLE CELL LYMPHOMA
     Dosage: 15 MG,
     Dates: start: 20090601, end: 20090706
  4. CLONAZEPAM [Concomitant]
  5. BACTRIM DS [Concomitant]
  6. CITALOPRAM HYDROBROMIDE [Concomitant]
  7. GABAPENTIN [Concomitant]
  8. LORTAB [Concomitant]
  9. MAGNESIUM OXIDE (MAGNESIUM OXIDE) [Concomitant]
  10. POTASSIUM CHLORIDE [Concomitant]
  11. PHENERGAN HCL [Concomitant]
  12. VALTREX [Concomitant]

REACTIONS (8)
  - CELLULITIS [None]
  - DYSPNOEA [None]
  - HERPES ZOSTER [None]
  - IMPETIGO [None]
  - NAUSEA [None]
  - PAIN [None]
  - VOMITING [None]
  - WHITE BLOOD CELL COUNT INCREASED [None]
